FAERS Safety Report 7405052-2 (Version None)
Quarter: 2011Q1

REPORT INFORMATION
  Report Type: 
  Country: None (occurrence: None)
  Receive Date: 20110331
  Receipt Date: 20101108
  Transmission Date: 20110831
  Serious: Yes (Hospitalization)
  Sender: FDA-Public Use
  Company Number: 2011MA002858

PATIENT
  Age: 60 Year
  Sex: Female

DRUGS (3)
  1. PACLITAXEL [Suspect]
     Indication: UTERINE CANCER
     Dosage: 350 MG; ;IV
     Route: 042
     Dates: start: 20100923, end: 20100923
  2. PACLITAXEL [Concomitant]
  3. CARBOPLATIN [Concomitant]

REACTIONS (5)
  - LOSS OF CONSCIOUSNESS [None]
  - ANAPHYLACTIC SHOCK [None]
  - INFUSION RELATED REACTION [None]
  - URINARY INCONTINENCE [None]
  - CYANOSIS [None]
